FAERS Safety Report 15256513 (Version 2)
Quarter: 2021Q4

REPORT INFORMATION
  Report Type: Report from Study
  Country: US (occurrence: None)
  Receive Date: 20180808
  Receipt Date: 20211101
  Transmission Date: 20220303
  Serious: Yes (Death, Other)
  Sender: FDA-Public Use
  Company Number: US-ROCHE-2160793

PATIENT
  Age: 63 Year
  Sex: Male
  Weight: 56.2 kg

DRUGS (3)
  1. CAPECITABINE [Suspect]
     Active Substance: CAPECITABINE
     Indication: Colorectal cancer metastatic
     Dosage: ON 18/JUN/2018, LAST DOSE (1500 MG) PRIOR TO THE EVENT
     Route: 048
     Dates: start: 20180419
  2. BEVACIZUMAB [Suspect]
     Active Substance: BEVACIZUMAB
     Indication: Colorectal cancer metastatic
     Dosage: FOR 14DAY?ON 15/MAY/2018, LAST DOSE PRIOR TO THE EVENT
     Route: 042
     Dates: start: 20180419
  3. ATEZOLIZUMAB [Suspect]
     Active Substance: ATEZOLIZUMAB
     Indication: Colorectal cancer metastatic
     Dosage: ON 12/JUN/2018, LAST DOSE PRIOR TO THE EVENT
     Route: 042
     Dates: start: 20180419

REACTIONS (2)
  - Death [Fatal]
  - Hypertension [Recovered/Resolved]

NARRATIVE: CASE EVENT DATE: 20180612
